FAERS Safety Report 15840435 (Version 1)
Quarter: 2019Q1

REPORT INFORMATION
  Report Type: Spontaneous
  Country: JP (occurrence: JP)
  Receive Date: 20190118
  Receipt Date: 20190118
  Transmission Date: 20190417
  Serious: Yes (Death)
  Sender: FDA-Public Use
  Company Number: JP-ROCHE-2080372

PATIENT
  Age: 39 Year
  Sex: Male

DRUGS (1)
  1. AVASTIN [Suspect]
     Active Substance: BEVACIZUMAB
     Indication: MALIGNANT GLIOMA
     Dosage: ADMINISTRATION PERIOD 55 COURSES
     Route: 041

REACTIONS (4)
  - Alopecia [Unknown]
  - Fatigue [Unknown]
  - Proteinuria [Unknown]
  - Malignant glioma [Fatal]

NARRATIVE: CASE EVENT DATE: 20160316
